FAERS Safety Report 18534533 (Version 1)
Quarter: 2020Q4

REPORT INFORMATION
  Report Type: Spontaneous
  Country: US (occurrence: US)
  Receive Date: 20201123
  Receipt Date: 20201123
  Transmission Date: 20210114
  Serious: Yes (Other)
  Sender: FDA-Public Use
  Company Number: None

PATIENT
  Age: 73 Year
  Sex: Male
  Weight: 87.75 kg

DRUGS (4)
  1. FINOFIBRATE [Concomitant]
     Active Substance: FENOFIBRATE
  2. LORAZEPAM 1 MG [Suspect]
     Active Substance: LORAZEPAM
     Indication: SLEEP DISORDER
     Dosage: QUANTITY:1 TABLET(S);?
     Route: 048
     Dates: start: 20201119, end: 20201122
  3. NIFEDIPINE. [Concomitant]
     Active Substance: NIFEDIPINE
  4. LORAZEPAM 1 MG [Suspect]
     Active Substance: LORAZEPAM
     Indication: ANXIETY
     Dosage: QUANTITY:1 TABLET(S);?
     Route: 048
     Dates: start: 20201119, end: 20201122

REACTIONS (1)
  - Drug ineffective [None]

NARRATIVE: CASE EVENT DATE: 20201119
